FAERS Safety Report 9200499 (Version 1)
Quarter: 2013Q1

REPORT INFORMATION
  Report Type: Report from Study
  Country: TR (occurrence: TR)
  Receive Date: 20130329
  Receipt Date: 20130329
  Transmission Date: 20140127
  Serious: Yes (Hospitalization)
  Sender: FDA-Public Use
  Company Number: TR-US-EMD SERONO, INC.-7201536

PATIENT
  Age: 37 Year
  Sex: Female
  Weight: 64 kg

DRUGS (2)
  1. REBIF [Suspect]
     Indication: RELAPSING-REMITTING MULTIPLE SCLEROSIS
     Route: 058
     Dates: start: 20121214, end: 20130315
  2. BRUFEN [Suspect]
     Indication: ANALGESIC THERAPY
     Route: 048
     Dates: start: 20121214, end: 20130315

REACTIONS (3)
  - Blood test abnormal [Not Recovered/Not Resolved]
  - Asthenia [Not Recovered/Not Resolved]
  - Yellow skin [Not Recovered/Not Resolved]
